FAERS Safety Report 6164888-9 (Version None)
Quarter: 2009Q2

REPORT INFORMATION
  Report Type: 
  Country: None (occurrence: None)
  Receive Date: 20090423
  Receipt Date: 20090414
  Transmission Date: 20091009
  Serious: Yes (Other)
  Sender: FDA-Public Use
  Company Number: PHHO2009DE04768

PATIENT
  Sex: Female
  Weight: 61 kg

DRUGS (3)
  1. ZOLEDRONIC ACID [Suspect]
     Dosage: 4MG
     Route: 042
     Dates: start: 20071114, end: 20090107
  2. CALCIUM [Concomitant]
  3. VITAMIN D [Concomitant]

REACTIONS (6)
  - IMPAIRED HEALING [None]
  - JAW OPERATION [None]
  - OSTEONECROSIS [None]
  - PERIODONTITIS [None]
  - SEQUESTRECTOMY [None]
  - TOOTH EXTRACTION [None]
